FAERS Safety Report 4285341-3 (Version None)
Quarter: 2004Q1

REPORT INFORMATION
  Report Type: 
  Country: None (occurrence: None)
  Receive Date: 20040203
  Receipt Date: 20040203
  Transmission Date: 20041129
  Serious: Yes (Hospitalization)
  Sender: FDA-Public Use
  Company Number: None

PATIENT
  Age: 27 Year
  Sex: Female
  Weight: 53.6 kg

DRUGS (3)
  1. CIPROFLOXACIN XR [Suspect]
     Indication: URINARY TRACT INFECTION
     Dosage: 500 MG PO BID
     Route: 048
  2. ADVIL [Suspect]
     Dosage: 200 MG PO PRN
     Route: 048
  3. ORAL CONTRACEPTIVES [Concomitant]

REACTIONS (2)
  - COMA [None]
  - STATUS EPILEPTICUS [None]
